FAERS Safety Report 24434472 (Version 1)
Quarter: 2024Q4

REPORT INFORMATION
  Report Type: Spontaneous
  Country: CA (occurrence: CA)
  Receive Date: 20241014
  Receipt Date: 20241014
  Transmission Date: 20250114
  Serious: Yes (Hospitalization, Other)
  Sender: SANDOZ
  Company Number: CA-SANDOZ-SDZ2024CA086616

PATIENT
  Age: 53 Year
  Sex: Male

DRUGS (6)
  1. VANCOMYCIN HYDROCHLORIDE [Suspect]
     Active Substance: VANCOMYCIN HYDROCHLORIDE
     Indication: Pneumonia necrotising
     Dosage: UNK
     Route: 065
  2. VANCOMYCIN HYDROCHLORIDE [Suspect]
     Active Substance: VANCOMYCIN HYDROCHLORIDE
     Indication: Pleural infection bacterial
  3. MYCOPHENOLATE MOFETIL [Concomitant]
     Active Substance: MYCOPHENOLATE MOFETIL
     Indication: Product used for unknown indication
     Route: 065
  4. PREDNISONE [Concomitant]
     Active Substance: PREDNISONE
     Indication: Product use in unapproved indication
     Route: 065
  5. PREDNISONE [Concomitant]
     Active Substance: PREDNISONE
     Indication: Product use in unapproved indication
     Route: 065
  6. TACROLIMUS [Concomitant]
     Active Substance: TACROLIMUS
     Indication: Product use in unapproved indication
     Route: 065

REACTIONS (4)
  - Lung lobectomy [Recovered/Resolved]
  - Pathogen resistance [Recovered/Resolved]
  - Pleural infection [Recovered/Resolved]
  - Pneumonia necrotising [Recovered/Resolved]
